FAERS Safety Report 5022888-6 (Version None)
Quarter: 2006Q2

REPORT INFORMATION
  Report Type: 
  Country: None (occurrence: None)
  Receive Date: 20060426
  Receipt Date: 20060314
  Transmission Date: 20061013
  Serious: Yes (Other)
  Sender: FDA-Public Use
  Company Number: 2006042103

PATIENT
  Age: 36 Year
  Sex: Female

DRUGS (7)
  1. LYRICA [Suspect]
     Indication: NECK PAIN
     Dosage: 50 MG (25 MG,2 IN 1 D)
     Dates: end: 20060207
  2. NEURONTIN [Concomitant]
  3. EFFEXOR [Concomitant]
  4. BACLOFEN [Concomitant]
  5. CLONAZEPAM [Concomitant]
  6. AMITRIPTYLINE HCL [Concomitant]
  7. REBIF [Concomitant]

REACTIONS (2)
  - CONFUSIONAL STATE [None]
  - LETHARGY [None]
